FAERS Safety Report 10754736 (Version 1)
Quarter: 2015Q1

REPORT INFORMATION
  Report Type: Spontaneous
  Country: US (occurrence: None)
  Receive Date: 20150130
  Receipt Date: 20150130
  Transmission Date: 20150721
  Serious: Yes (Hospitalization)
  Sender: FDA-Public Use
  Company Number: None

PATIENT
  Age: 47 Year
  Sex: Male
  Weight: 63.8 kg

DRUGS (1)
  1. OXALIPLATIN. [Suspect]
     Active Substance: OXALIPLATIN
     Dosage: PATIENT HAD?
     Dates: end: 20150116

REACTIONS (4)
  - Pyrexia [None]
  - Chills [None]
  - Blood pressure decreased [None]
  - Feeling abnormal [None]

NARRATIVE: CASE EVENT DATE: 20150116
